FAERS Safety Report 5815005-3 (Version None)
Quarter: 2008Q3

REPORT INFORMATION
  Report Type: 
  Country: None (occurrence: None)
  Receive Date: 20080718
  Receipt Date: 20080715
  Transmission Date: 20090109
  Serious: Yes (Hospitalization)
  Sender: FDA-Public Use
  Company Number: A0737747A

PATIENT
  Age: 55 Year
  Sex: Male

DRUGS (14)
  1. ADVAIR DISKUS 100/50 [Suspect]
     Indication: CHRONIC OBSTRUCTIVE PULMONARY DISEASE
     Dosage: 1PUFF TWICE PER DAY
     Route: 055
     Dates: start: 20080101
  2. PROGESTERONE [Concomitant]
  3. UNSPECIFIED MEDICATION [Concomitant]
  4. PROMETHAZINE [Concomitant]
  5. ASPIRIN [Concomitant]
  6. LOVENOX [Concomitant]
  7. NIFEDIPINE [Concomitant]
  8. OMEPRAZOLE [Concomitant]
  9. ENULOSE [Concomitant]
  10. OXYCONTIN [Concomitant]
  11. NITROGLYCERIN [Concomitant]
  12. ATROVENT [Concomitant]
  13. ALBUTEROL [Concomitant]
  14. LEVAQUIN [Concomitant]

REACTIONS (18)
  - ABDOMINAL DISTENSION [None]
  - CANDIDIASIS [None]
  - CHEST PAIN [None]
  - COUGH [None]
  - DYSPEPSIA [None]
  - ECCHYMOSIS [None]
  - GASTROOESOPHAGEAL REFLUX DISEASE [None]
  - HEPATIC ENZYME INCREASED [None]
  - HEPATITIS C [None]
  - INCREASED UPPER AIRWAY SECRETION [None]
  - OEDEMA PERIPHERAL [None]
  - PAIN [None]
  - PNEUMONIA [None]
  - PULMONARY THROMBOSIS [None]
  - RESPIRATORY TRACT CONGESTION [None]
  - TRACHEITIS [None]
  - TREMOR [None]
  - WHEEZING [None]
